FAERS Safety Report 10651868 (Version 3)
Quarter: 2014Q4

REPORT INFORMATION
  Report Type: Report from Study
  Country: IL (occurrence: IL)
  Receive Date: 20141215
  Receipt Date: 20141219
  Transmission Date: 20150529
  Serious: Yes (Death, Hospitalization)
  Sender: FDA-Public Use
  Company Number: IL-009507513-1401ISR008928

PATIENT
  Age: 56 Year
  Sex: Female
  Weight: 66.5 kg

DRUGS (28)
  1. MAGNESIUM SULFATE. [Concomitant]
     Active Substance: MAGNESIUM SULFATE
     Indication: HYPOMAGNESAEMIA
     Dosage: TOTAL DAILY DOSE: 3 G, PRN
     Route: 042
     Dates: start: 20131110, end: 20140112
  2. MEROPENEM. [Concomitant]
     Active Substance: MEROPENEM
     Indication: LUNG INFILTRATION
     Dosage: 1 G, TID
     Route: 042
     Dates: start: 20131229, end: 20140113
  3. LOSEC (OMEPRAZOLE) [Concomitant]
     Indication: PROPHYLAXIS
     Dosage: TOTAL DAILY DOSE 40 MG, (20 MG, BID)
     Route: 048
     Dates: start: 20131209, end: 20140106
  4. FUSID (FUROSEMIDE) [Concomitant]
     Active Substance: FUROSEMIDE
     Indication: FLUID OVERLOAD
     Dosage: 60 MG, QD
     Route: 042
     Dates: start: 20131127, end: 20140112
  5. TAZOCIN [Concomitant]
     Active Substance: PIPERACILLIN SODIUM\TAZOBACTAM SODIUM
     Indication: LUNG INFILTRATION
     Dosage: TOTAL DAILY DOSE 4.5 G, (1.5 G, TID)
     Route: 042
     Dates: start: 20131221, end: 20131229
  6. HYLO COMOD [Concomitant]
     Indication: EYE LUBRICATION THERAPY
     Dosage: TOTAL DAILY DOSE 1 APPLICATION, (0.25 APPLICATION, QID)
     Route: 047
     Dates: start: 20131209, end: 20140112
  7. CIPRALEX [Concomitant]
     Active Substance: ESCITALOPRAM OXALATE
     Indication: DEPRESSION
     Dosage: 10 MG, QD
     Route: 048
     Dates: start: 20131123, end: 20140112
  8. PLATELETS [Concomitant]
     Active Substance: HUMAN PLATELET, ALLOGENIC
     Indication: GASTROINTESTINAL HAEMORRHAGE
     Dosage: 250 MG, ONCE
     Route: 042
     Dates: start: 20140107, end: 20140107
  9. BLINDED POSACONAZOLE [Suspect]
     Active Substance: POSACONAZOLE
     Indication: ASPERGILLUS INFECTION
     Dosage: UNK
     Route: 042
     Dates: start: 20131210, end: 20131211
  10. BLINDED POSACONAZOLE [Suspect]
     Active Substance: POSACONAZOLE
     Dosage: UNK
     Route: 042
     Dates: start: 20131222, end: 20140110
  11. PANTOPRAZOLE [Concomitant]
     Active Substance: PANTOPRAZOLE SODIUM
     Indication: DYSPEPSIA
     Dosage: 40 MG, BID
     Route: 042
     Dates: start: 20131126, end: 20140112
  12. ALRIN [Concomitant]
     Indication: NASAL CONGESTION
     Dosage: TOTAL DAILY DOSE 2 APPLICATION, (1 APPLICATION, BID)
     Route: 045
     Dates: start: 20140102, end: 20140106
  13. POTASSIUM CHLORIDE. [Concomitant]
     Active Substance: POTASSIUM CHLORIDE
     Indication: HYPOKALAEMIA
     Dosage: TOTAL DAILY DOSE: 3 G, PRN
     Route: 042
     Dates: start: 20131110, end: 20140112
  14. ACTRAPID [Concomitant]
     Active Substance: INSULIN HUMAN
     Indication: DIABETES MELLITUS
     Dosage: 4 IU, QD
     Route: 058
     Dates: start: 20131127, end: 20140113
  15. DEXTROSE (+) SODIUM CHLORIDE [Concomitant]
     Indication: FLUID REPLACEMENT
     Dosage: TOTAL DAILY DOSE 1000 ML, PRN
     Route: 042
     Dates: start: 20131110, end: 20140112
  16. AMLODIPINE [Concomitant]
     Active Substance: AMLODIPINE BESYLATE
     Indication: HYPERTENSION
     Dosage: TOTAL DAILY DOSE: 5 MG, PRN
     Route: 048
     Dates: start: 20131111, end: 20140110
  17. DEXTROSE. [Concomitant]
     Active Substance: DEXTROSE
     Indication: FLUID REPLACEMENT
     Dosage: 500 ML, ONCE
     Route: 042
     Dates: start: 20131223, end: 20131227
  18. BUDESON [Concomitant]
     Indication: GRAFT VERSUS HOST DISEASE
     Dosage: TOTAL DAILY DOSE 3 MG, (1 G, TID)
     Route: 048
     Dates: start: 20131222, end: 20140109
  19. BLINDED POSACONAZOLE [Suspect]
     Active Substance: POSACONAZOLE
     Dosage: UNK
     Route: 042
     Dates: start: 20131221, end: 20131221
  20. SODIUM CHLORIDE. [Concomitant]
     Active Substance: SODIUM CHLORIDE
     Indication: FLUID REPLACEMENT
     Dosage: TOTAL DAILY DOSE: 500 ML, PRN
     Route: 042
     Dates: start: 20131118, end: 20140112
  21. AMINO ACIDS (UNSPECIFIED) (+) CARBOHYDRATES (UNSPECIFIED) (+) ELECTROL [Concomitant]
     Indication: NUTRITIONAL SUPPLEMENTATION
     Dosage: 2.5 L, QD
     Route: 042
     Dates: start: 20131118, end: 20140112
  22. CODEINE PHOSPHATE [Concomitant]
     Active Substance: CODEINE PHOSPHATE
     Indication: PRODUCTIVE COUGH
     Dosage: TOTAL DAILY DOSE: 20 MG, PRN
     Route: 048
     Dates: start: 20131228, end: 20140107
  23. BLINDED POSACONAZOLE [Suspect]
     Active Substance: POSACONAZOLE
     Dosage: UNK
     Route: 042
     Dates: start: 20131212, end: 20131220
  24. GANCICLOVIR. [Concomitant]
     Active Substance: GANCICLOVIR
     Indication: CYTOMEGALOVIRUS INFECTION
     Dosage: 300 MG, BID
     Route: 042
     Dates: start: 20131125, end: 20140112
  25. GLOBULIN, IMMUNE [Concomitant]
     Active Substance: HUMAN IMMUNOGLOBULIN G
     Indication: RESPIRATORY SYNCYTIAL VIRUS INFECTION
     Dosage: 40 G, ONCE
     Route: 042
     Dates: start: 20131227, end: 20131227
  26. PLATELETS [Concomitant]
     Active Substance: HUMAN PLATELET, ALLOGENIC
     Indication: THROMBOCYTOPENIA
     Dosage: 250 ML, ONCE
     Route: 042
     Dates: start: 20131230, end: 20131230
  27. PLATELETS [Concomitant]
     Active Substance: HUMAN PLATELET, ALLOGENIC
     Dosage: 250 ML, ONCE
     Route: 042
     Dates: start: 20140103, end: 20140103
  28. BLOOD CELLS, RED [Concomitant]
     Active Substance: HUMAN BLOOD CELLS
     Indication: ANAEMIA
     Dosage: 250 ML, ONCE
     Route: 042
     Dates: start: 20140104, end: 20140104

REACTIONS (1)
  - Bronchopulmonary aspergillosis [Fatal]

NARRATIVE: CASE EVENT DATE: 20140107
